FAERS Safety Report 15607918 (Version 7)
Quarter: 2020Q4

REPORT INFORMATION
  Report Type: Report from Study
  Country: DE (occurrence: DE)
  Receive Date: 20181112
  Receipt Date: 20201222
  Transmission Date: 20210113
  Serious: Yes (Hospitalization, Other)
  Sender: FDA-Public Use
  Company Number: DE-JNJFOC-20181105843

PATIENT
  Age: 68 Year
  Sex: Male
  Weight: 74 kg

DRUGS (2)
  1. STELARA [Suspect]
     Active Substance: USTEKINUMAB
     Indication: PSORIASIS
     Route: 058
     Dates: start: 20140424, end: 20190710
  2. STELARA [Suspect]
     Active Substance: USTEKINUMAB
     Route: 058

REACTIONS (2)
  - Acute lymphocytic leukaemia [Not Recovered/Not Resolved]
  - B-cell lymphoma stage I [Not Recovered/Not Resolved]

NARRATIVE: CASE EVENT DATE: 20180317
